FAERS Safety Report 21641397 (Version 1)
Quarter: 2022Q4

REPORT INFORMATION
  Report Type: Spontaneous
  Country: DE (occurrence: DE)
  Receive Date: 20221125
  Receipt Date: 20221125
  Transmission Date: 20230112
  Serious: Yes (Other)
  Sender: FDA-Public Use
  Company Number: DE-002147023-NVSC2022DE264075

PATIENT
  Age: 79 Year
  Sex: Male

DRUGS (1)
  1. BEOVU [Suspect]
     Active Substance: BROLUCIZUMAB-DBLL
     Indication: Neovascular age-related macular degeneration
     Dosage: UNK, 3 BEOVU INJECTIONS (INTRAVITREAL DRUG DELIVERY, INTRAVITREAL DRUG DELIVERY (IVOM), INJECTION
     Route: 031

REACTIONS (3)
  - Subretinal fibrosis [Not Recovered/Not Resolved]
  - Retinal oedema [Not Recovered/Not Resolved]
  - Blindness [Not Recovered/Not Resolved]
